FAERS Safety Report 21655148 (Version 2)
Quarter: 2023Q1

REPORT INFORMATION
  Report Type: Spontaneous
  Country: CA (occurrence: CA)
  Receive Date: 20221129
  Receipt Date: 20230213
  Transmission Date: 20230418
  Serious: Yes (Other)
  Sender: FDA-Public Use
  Company Number: CA-PFIZER INC-202200771882

PATIENT
  Age: 21 Year
  Sex: Male

DRUGS (5)
  1. ABRILADA [Suspect]
     Active Substance: ADALIMUMAB-AFZB
     Indication: Crohn^s disease
     Dosage: 1 DF, 160 MG WEEK 0, 80 MG WEEK 2, THEN 40 MG Q 2 WEEKS-PREFILLED PEN-DISCONTINUED
     Route: 058
     Dates: start: 20220418, end: 2022
  2. ABRILADA [Suspect]
     Active Substance: ADALIMUMAB-AFZB
     Dosage: 160 MG WEEK 0, 80 MG WEEK 2, THEN 40 MG Q 2 WEEKS
     Route: 058
     Dates: start: 20220502, end: 2022
  3. ABRILADA [Suspect]
     Active Substance: ADALIMUMAB-AFZB
     Dosage: 160 MG WEEK 0, 80 MG WEEK 2, THEN 40 MG Q 2 WEEKS
     Route: 058
     Dates: start: 20220526, end: 2022
  4. CORTISONE [Concomitant]
     Active Substance: CORTISONE
     Dosage: UNK
  5. METHOTREXATE [Concomitant]
     Active Substance: METHOTREXATE
     Dosage: 1 DF, DOSAGE NOT AVAILABLE-DICONTINUED
     Route: 065
     Dates: start: 202201, end: 2022

REACTIONS (1)
  - Dermatitis psoriasiform [Unknown]

NARRATIVE: CASE EVENT DATE: 20220101
